FAERS Safety Report 12864731 (Version 1)
Quarter: 2016Q4

REPORT INFORMATION
  Report Type: Spontaneous
  Country: DE (occurrence: DE)
  Receive Date: 20161020
  Receipt Date: 20161020
  Transmission Date: 20170207
  Serious: Yes (Other)
  Sender: FDA-Public Use
  Company Number: DE-ROCHE-1844016

PATIENT
  Age: 75 Year
  Sex: Female

DRUGS (5)
  1. 5-FU [Concomitant]
     Active Substance: FLUOROURACIL
     Indication: RECTAL CANCER
     Route: 042
     Dates: start: 20160830, end: 20160831
  2. CALCIUMFOLINAT [Concomitant]
     Active Substance: LEUCOVORIN CALCIUM
     Indication: RECTAL CANCER
     Route: 042
     Dates: start: 20160830, end: 20160831
  3. METOPROLOL. [Concomitant]
     Active Substance: METOPROLOL
     Indication: HYPERTENSION
     Route: 048
  4. ELIQUIS [Concomitant]
     Active Substance: APIXABAN
     Indication: PULMONARY EMBOLISM
     Route: 048
  5. AVASTIN [Suspect]
     Active Substance: BEVACIZUMAB
     Indication: RECTAL CANCER
     Route: 042
     Dates: start: 20160831

REACTIONS (3)
  - Cerebral venous thrombosis [Recovering/Resolving]
  - Confusional state [Recovering/Resolving]
  - Cerebral ischaemia [Recovering/Resolving]

NARRATIVE: CASE EVENT DATE: 20160902
